FAERS Safety Report 13686377 (Version 1)
Quarter: 2017Q2

REPORT INFORMATION
  Report Type: Spontaneous
  Country: US (occurrence: US)
  Receive Date: 20170623
  Receipt Date: 20170623
  Transmission Date: 20170830
  Serious: No
  Sender: FDA-Public Use
  Company Number: US-ROCHE-1112233

PATIENT
  Sex: Female

DRUGS (2)
  1. MYCOPHENOLATE MOFETIL. [Suspect]
     Active Substance: MYCOPHENOLATE MOFETIL
     Route: 048
  2. MYCOPHENOLATE MOFETIL. [Suspect]
     Active Substance: MYCOPHENOLATE MOFETIL
     Indication: NEUROMYELITIS OPTICA SPECTRUM DISORDER
     Route: 048

REACTIONS (6)
  - Pharyngeal ulceration [Unknown]
  - Stomatitis [Unknown]
  - Abdominal discomfort [Unknown]
  - Cheilitis [Unknown]
  - Plicated tongue [Unknown]
  - Oral discomfort [Unknown]
